FAERS Safety Report 19448913 (Version 3)
Quarter: 2022Q2

REPORT INFORMATION
  Report Type: Spontaneous
  Country: US (occurrence: US)
  Receive Date: 20210622
  Receipt Date: 20220411
  Transmission Date: 20220721
  Serious: Yes (Hospitalization, Other)
  Sender: FDA-Public Use
  Company Number: US-MLMSERVICE-20210609-2930204-1

PATIENT
  Age: 73 Year
  Sex: Female

DRUGS (4)
  1. ZOLEDRONIC ACID [Suspect]
     Active Substance: ZOLEDRONIC ACID
     Indication: Osteoporosis
     Dosage: 5 MG
     Dates: start: 20201123, end: 20201123
  2. ADALIMUMAB [Concomitant]
     Active Substance: ADALIMUMAB
     Indication: Sjogren^s syndrome
     Dosage: UNK
  3. SULFASALAZINE [Concomitant]
     Active Substance: SULFASALAZINE
     Indication: Sjogren^s syndrome
     Dosage: UNK
  4. METHOTREXATE [Concomitant]
     Active Substance: METHOTREXATE
     Indication: Sjogren^s syndrome
     Dosage: UNK

REACTIONS (2)
  - Renal tubular necrosis [Unknown]
  - Off label use [Unknown]

NARRATIVE: CASE EVENT DATE: 20201123
